FAERS Safety Report 10289466 (Version 1)
Quarter: 2014Q3

REPORT INFORMATION
  Report Type: Spontaneous
  Country: JP (occurrence: JP)
  Receive Date: 20140710
  Receipt Date: 20140710
  Transmission Date: 20150326
  Serious: Yes (Hospitalization)
  Sender: FDA-Public Use
  Company Number: JP-BRISTOL-MYERS SQUIBB COMPANY-21178835

PATIENT
  Age: 54 Year
  Sex: Male

DRUGS (1)
  1. KENACORT [Suspect]
     Active Substance: TRIAMCINOLONE
     Dosage: 1DF=0.5CC

REACTIONS (1)
  - Retinal artery thrombosis [Recovering/Resolving]

NARRATIVE: CASE EVENT DATE: 20140701
